FAERS Safety Report 15546358 (Version 1)
Quarter: 2018Q4

REPORT INFORMATION
  Report Type: Spontaneous
  Country: US (occurrence: US)
  Receive Date: 20181023
  Receipt Date: 20181023
  Transmission Date: 20190205
  Serious: Yes (Other)
  Sender: FDA-Public Use
  Company Number: None

PATIENT
  Age: 70 Year
  Sex: Female
  Weight: 66.15 kg

DRUGS (16)
  1. CALCIUM GUMMIES [Concomitant]
  2. HYDROCHLOROTHIAZIDE. [Concomitant]
     Active Substance: HYDROCHLOROTHIAZIDE
  3. GABAPENTIN. [Concomitant]
     Active Substance: GABAPENTIN
  4. ONDANSETRON [Concomitant]
     Active Substance: ONDANSETRON
  5. ASPIRIN. [Concomitant]
     Active Substance: ASPIRIN
  6. CAPECITABINE. [Suspect]
     Active Substance: CAPECITABINE
     Indication: BREAST CANCER FEMALE
     Route: 048
     Dates: start: 20180731, end: 20181022
  7. ATORVASTATIN [Concomitant]
     Active Substance: ATORVASTATIN
  8. ATIVAN [Concomitant]
     Active Substance: LORAZEPAM
  9. KLOR-CON [Concomitant]
     Active Substance: POTASSIUM CHLORIDE
  10. FASLODEX [Concomitant]
     Active Substance: FULVESTRANT
  11. DULCOLAX NOS [Concomitant]
     Active Substance: BISACODYL OR DOCUSATE SODIUM
  12. TRAMADOL. [Concomitant]
     Active Substance: TRAMADOL
  13. SUMATRIPTAN. [Concomitant]
     Active Substance: SUMATRIPTAN
  14. OMEPRAZOLE. [Concomitant]
     Active Substance: OMEPRAZOLE
  15. COLACE [Concomitant]
     Active Substance: DOCUSATE SODIUM
  16. VITAMIN D [Concomitant]
     Active Substance: CHOLECALCIFEROL

REACTIONS (1)
  - Disease progression [None]

NARRATIVE: CASE EVENT DATE: 20181022
